FAERS Safety Report 10080929 (Version 1)
Quarter: 2014Q2

REPORT INFORMATION
  Report Type: Spontaneous
  Country: US (occurrence: None)
  Receive Date: 20140414
  Receipt Date: 20140414
  Transmission Date: 20141212
  Serious: Yes (Other)
  Sender: FDA-Public Use
  Company Number: 2014-PEL-000045

PATIENT
  Age: 63 Year
  Sex: Female

DRUGS (2)
  1. SEVOFLURANE [Suspect]
     Indication: GENERAL ANAESTHESIA
  2. DOFETILIDE [Suspect]
     Indication: ATRIAL FIBRILLATION

REACTIONS (4)
  - Electrocardiogram QT prolonged [None]
  - Ventricular extrasystoles [None]
  - Ventricular fibrillation [None]
  - Drug interaction [None]
